FAERS Safety Report 13299355 (Version 2)
Quarter: 2022Q3

REPORT INFORMATION
  Report Type: Spontaneous
  Country: US (occurrence: US)
  Receive Date: 20170306
  Receipt Date: 20220928
  Transmission Date: 20221026
  Serious: Yes (Hospitalization)
  Sender: FDA-Public Use
  Company Number: US-VERTEX PHARMACEUTICALS-2017-001173

PATIENT
  Sex: Male
  Weight: 40 kg

DRUGS (4)
  1. ORKAMBI [Suspect]
     Active Substance: IVACAFTOR\LUMACAFTOR
     Indication: Cystic fibrosis
     Dosage: (200MG LUMACAFTOR/125MG IVACAFTOR), BID
     Route: 048
     Dates: start: 20161001, end: 20190419
  2. HUMATROPE [Concomitant]
     Active Substance: SOMATROPIN
  3. PULMOZYME [Concomitant]
     Active Substance: DORNASE ALFA
  4. XOLAIR [Concomitant]
     Active Substance: OMALIZUMAB

REACTIONS (1)
  - Cystic fibrosis [Not Recovered/Not Resolved]

NARRATIVE: CASE EVENT DATE: 20170101
